FAERS Safety Report 5844033-7 (Version None)
Quarter: 2008Q3

REPORT INFORMATION
  Report Type: 
  Country: None (occurrence: None)
  Receive Date: 20080813
  Receipt Date: 20080731
  Transmission Date: 20090109
  Serious: Yes (Hospitalization, Disabling)
  Sender: FDA-Public Use
  Company Number: IE-ELI_LILLY_AND_COMPANY-IE200808000119

PATIENT
  Age: 48 Year
  Sex: Male

DRUGS (1)
  1. ZYPREXA [Suspect]
     Indication: PSYCHOTIC DISORDER
     Dosage: 15 MG, DAILY (1/D)
     Route: 048
     Dates: start: 20080318, end: 20080701

REACTIONS (1)
  - DEEP VEIN THROMBOSIS [None]
